FAERS Safety Report 9949038 (Version 2)
Quarter: 2015Q4

REPORT INFORMATION
  Report Type: Report from Study
  Country: US (occurrence: US)
  Receive Date: 20140304
  Receipt Date: 20151119
  Transmission Date: 20160305
  Serious: Yes (Other)
  Sender: FDA-Public Use
  Company Number: US-ROCHE-1342271

PATIENT
  Age: 53 Year
  Sex: Male

DRUGS (4)
  1. LUCENTIS [Suspect]
     Active Substance: RANIBIZUMAB
     Indication: NEOVASCULAR AGE-RELATED MACULAR DEGENERATION
     Dosage: HE RECEIVED ANOTHER DOSE ON 15/JUN/2011, 20/JUL/2011, 24/AUG/2011, 28/SEP/2011, 02/NOV/2011, 07/DEC/
     Route: 050
  2. AVASTIN [Suspect]
     Active Substance: BEVACIZUMAB
     Indication: PRODUCT USED FOR UNKNOWN INDICATION
     Route: 050
  3. ALPHAGAN P [Concomitant]
     Active Substance: BRIMONIDINE TARTRATE
     Dosage: BID OD
     Route: 065
  4. BRIMONIDINE [Concomitant]
     Active Substance: BRIMONIDINE TARTRATE
     Dosage: BID OD
     Route: 065

REACTIONS (19)
  - Therapeutic response decreased [Unknown]
  - Pallor [Unknown]
  - Optic neuropathy [Unknown]
  - Eyelid ptosis [Unknown]
  - Photopsia [Unknown]
  - Vitreous detachment [Unknown]
  - Vitreous floaters [Unknown]
  - Eye laser scar [Unknown]
  - Stress [Unknown]
  - Lip swelling [Unknown]
  - Conjunctival hyperaemia [Unknown]
  - Vision blurred [Unknown]
  - Detachment of macular retinal pigment epithelium [Unknown]
  - Metamorphopsia [Unknown]
  - Retinal depigmentation [Unknown]
  - Macular oedema [Unknown]
  - Visual impairment [Unknown]
  - Visual acuity reduced [Unknown]
  - Glaucoma [Unknown]

NARRATIVE: CASE EVENT DATE: 20110614
